FAERS Safety Report 7418043-2 (Version None)
Quarter: 2011Q2

REPORT INFORMATION
  Report Type: 
  Country: None (occurrence: None)
  Receive Date: 20110415
  Receipt Date: 20110407
  Transmission Date: 20111010
  Serious: Yes (Hospitalization)
  Sender: FDA-Public Use
  Company Number: DE-ROCHE-770540

PATIENT
  Age: 74 Year
  Sex: Female

DRUGS (1)
  1. ROACTEMRA [Suspect]
     Dosage: LAST APPLICATION PRIOR TO THE EVENT WAS APPROX. ON 04 APR 2011
     Route: 042
     Dates: start: 20090801

REACTIONS (2)
  - STAPHYLOCOCCAL SEPSIS [None]
  - CEREBROVASCULAR ACCIDENT [None]
